FAERS Safety Report 17674350 (Version 1)
Quarter: 2020Q2

REPORT INFORMATION
  Report Type: Spontaneous
  Country: RU (occurrence: RU)
  Receive Date: 20200416
  Receipt Date: 20200416
  Transmission Date: 20200714
  Serious: Yes (Other)
  Sender: FDA-Public Use
  Company Number: RU-ASTRAZENECA-2020SE48841

PATIENT
  Age: 4 Year
  Sex: Male

DRUGS (4)
  1. PULMICORT TURBUHALER [Suspect]
     Active Substance: BUDESONIDE
     Indication: BRONCHITIS
     Route: 055
  2. PULMICORT TURBUHALER [Suspect]
     Active Substance: BUDESONIDE
     Indication: BRONCHITIS
     Route: 055
  3. PULMICORT TURBUHALER [Suspect]
     Active Substance: BUDESONIDE
     Indication: BRONCHITIS
     Route: 055
  4. BERODUAL [Concomitant]
     Active Substance: FENOTEROL HYDROBROMIDE\IPRATROPIUM BROMIDE

REACTIONS (5)
  - Respiratory failure [Recovered/Resolved]
  - Hypoxia [Recovered/Resolved]
  - Off label use [Recovered/Resolved]
  - Withdrawal syndrome [Recovered/Resolved]
  - Dyspnoea [Recovered/Resolved]
